FAERS Safety Report 24643988 (Version 2)
Quarter: 2024Q4

REPORT INFORMATION
  Report Type: Spontaneous
  Country: BR (occurrence: BR)
  Receive Date: 20241120
  Receipt Date: 20241205
  Transmission Date: 20250115
  Serious: Yes (Other)
  Sender: MERCK
  Company Number: BR-009507513-2411BRA006713

PATIENT
  Age: 40 Year
  Sex: Female

DRUGS (1)
  1. KEYTRUDA [Suspect]
     Active Substance: PEMBROLIZUMAB
     Indication: Triple negative breast cancer

REACTIONS (6)
  - Immune-mediated oesophagitis [Unknown]
  - Pyrexia [Unknown]
  - Stomatitis [Unknown]
  - Hyperaemia [Unknown]
  - Odynophagia [Unknown]
  - Weight decreased [Unknown]
